FAERS Safety Report 4664810-8 (Version None)
Quarter: 2005Q2

REPORT INFORMATION
  Report Type: 
  Country: None (occurrence: None)
  Receive Date: 20050516
  Receipt Date: 20050502
  Transmission Date: 20051028
  Serious: Yes (Hospitalization)
  Sender: FDA-Public Use
  Company Number: A213670

PATIENT
  Age: 49 Year
  Sex: Female

DRUGS (7)
  1. ZOLOFT [Suspect]
     Indication: DEPRESSIVE SYMPTOM
     Dosage: 50 MG (1 IN 1 D), ORAL
     Route: 048
     Dates: start: 20020226
  2. PREDNISONE [Suspect]
     Indication: SYSTEMIC LUPUS ERYTHEMATOSUS
     Dosage: ORAL
     Route: 048
     Dates: start: 20020225
  3. PHENYTOIN [Suspect]
     Indication: ILL-DEFINED DISORDER
     Dosage: 400 MG (1 IN 1 D), ORAL
     Route: 048
  4. LEVAXIN (LEVOTHYROXINE SODIUM) [Concomitant]
  5. MYSOLINE [Concomitant]
  6. PLAQUENIL [Concomitant]
  7. THROMBYL (ACETYLSALICYLIC ACID) [Concomitant]

REACTIONS (2)
  - ANTICONVULSANT DRUG LEVEL INCREASED [None]
  - DIZZINESS [None]
